FAERS Safety Report 5322072-2 (Version None)
Quarter: 2007Q2

REPORT INFORMATION
  Report Type: 
  Country: None (occurrence: None)
  Receive Date: 20070220
  Receipt Date: 20060530
  Transmission Date: 20071010
  Serious: Yes (Life-Threatening, Disabling)
  Sender: FDA-Public Use
  Company Number: WAES 0605USA05128

PATIENT
  Age: 25 Year
  Sex: Male

DRUGS (1)
  1. PROPECIA [Suspect]
     Indication: ALOPECIA
     Dosage: 1MG/DAILY;PO
     Route: 048
     Dates: start: 20000701, end: 20050801

REACTIONS (3)
  - ERECTILE DYSFUNCTION [None]
  - GYNAECOMASTIA [None]
  - LIBIDO DECREASED [None]
